FAERS Safety Report 6821242-1 (Version None)
Quarter: 2010Q3

REPORT INFORMATION
  Report Type: 
  Country: None (occurrence: None)
  Receive Date: 20100707
  Receipt Date: 20080415
  Transmission Date: 20110219
  Serious: No
  Sender: FDA-Public Use
  Company Number: US-PFIZER INC-2008019175

PATIENT
  Sex: Female
  Weight: 77.3 kg

DRUGS (4)
  1. ZOLOFT [Suspect]
     Indication: PREMENSTRUAL SYNDROME
     Dates: start: 20080101, end: 20080225
  2. ALBUTEROL [Concomitant]
     Indication: WHEEZING
  3. ADVAIR DISKUS 100/50 [Concomitant]
     Indication: ASTHMA
  4. CLARITIN [Concomitant]

REACTIONS (13)
  - ACTIVITIES OF DAILY LIVING IMPAIRED [None]
  - ARTHRALGIA [None]
  - DRUG DOSE OMISSION [None]
  - DRUG INEFFECTIVE FOR UNAPPROVED INDICATION [None]
  - DYSPNOEA [None]
  - FATIGUE [None]
  - HAEMATOCHEZIA [None]
  - MUSCLE FATIGUE [None]
  - MUSCULAR WEAKNESS [None]
  - OEDEMA [None]
  - PYREXIA [None]
  - SOMNOLENCE [None]
  - WEIGHT INCREASED [None]
